FAERS Safety Report 10812046 (Version 1)
Quarter: 2015Q1

REPORT INFORMATION
  Report Type: Spontaneous
  Country: US (occurrence: None)
  Receive Date: 20150213
  Receipt Date: 20150213
  Transmission Date: 20150721
  Serious: No
  Sender: FDA-Public Use
  Company Number: None

PATIENT
  Age: 47 Year
  Sex: Female

DRUGS (1)
  1. HYDROXYUREA. [Suspect]
     Active Substance: HYDROXYUREA
     Dosage: 1 EXC SUN / 2 QD ORAL

REACTIONS (2)
  - Lactose intolerance [None]
  - Abdominal pain upper [None]

NARRATIVE: CASE EVENT DATE: 20150212
